FAERS Safety Report 25162857 (Version 2)
Quarter: 2025Q2

REPORT INFORMATION
  Report Type: Spontaneous
  Country: US (occurrence: US)
  Receive Date: 20250404
  Receipt Date: 20250417
  Transmission Date: 20250717
  Serious: Yes (Life-Threatening, Other)
  Sender: PFIZER
  Company Number: US-PFIZER INC-PV202500038753

PATIENT
  Age: 88 Year
  Sex: Male

DRUGS (2)
  1. PHENELZINE SULFATE [Interacting]
     Active Substance: PHENELZINE SULFATE
     Indication: Antipsychotic therapy
  2. ZYPREXA [Interacting]
     Active Substance: OLANZAPINE
     Indication: Agitation

REACTIONS (2)
  - Neuroleptic malignant syndrome [Recovering/Resolving]
  - Drug interaction [Recovering/Resolving]
